FAERS Safety Report 11325451 (Version 9)
Quarter: 2017Q2

REPORT INFORMATION
  Report Type: Report from Study
  Country: US (occurrence: US)
  Receive Date: 20150730
  Receipt Date: 20170628
  Transmission Date: 20170829
  Serious: Yes (Hospitalization, Other)
  Sender: FDA-Public Use
  Company Number: US-JNJFOC-20150716650

PATIENT
  Age: 72 Year
  Sex: Female

DRUGS (28)
  1. LEVOTHYROXINE. [Concomitant]
     Active Substance: LEVOTHYROXINE
     Indication: HYPOTHYROIDISM
  2. CHROMIUM PICOLINATE [Concomitant]
     Active Substance: CHROMIUM PICOLINATE
  3. IMBRUVICA [Suspect]
     Active Substance: IBRUTINIB
     Indication: MANTLE CELL LYMPHOMA
     Route: 048
     Dates: start: 20130710
  4. IMBRUVICA [Suspect]
     Active Substance: IBRUTINIB
     Indication: MANTLE CELL LYMPHOMA
     Route: 048
     Dates: start: 20151223
  5. DILTIAZEM. [Concomitant]
     Active Substance: DILTIAZEM
     Indication: ATRIAL FIBRILLATION
     Route: 048
     Dates: start: 20140501
  6. BIFIDOBACTERIUM LACTIS [Concomitant]
     Active Substance: BIFIDOBACTERIUM ANIMALIS SUBSP. LACTIS
  7. ASPIRIN. [Concomitant]
     Active Substance: ASPIRIN
  8. GARLIC. [Concomitant]
     Active Substance: GARLIC
  9. ARMOUR THYROID [Concomitant]
     Active Substance: THYROID, PORCINE
     Indication: THYROID DISORDER
     Route: 048
  10. ASCORBIC ACID. [Concomitant]
     Active Substance: ASCORBIC ACID
  11. LECITHIN [Concomitant]
     Active Substance: LECITHIN
  12. CALCIUM [Concomitant]
     Active Substance: CALCIUM
  13. TAMIFLU [Concomitant]
     Active Substance: OSELTAMIVIR PHOSPHATE
  14. BIOTIN [Concomitant]
     Active Substance: BIOTIN
  15. KLOR-CON [Concomitant]
     Active Substance: POTASSIUM CHLORIDE
     Indication: MINERAL SUPPLEMENTATION
     Dates: start: 20140501
  16. ASPIRIN. [Concomitant]
     Active Substance: ASPIRIN
  17. CALCIUM W/COLECALCIFEROL [Concomitant]
     Active Substance: CALCIUM\CHOLECALCIFEROL
  18. L ARGININE [Concomitant]
     Active Substance: ARGININE
  19. BACTRIM [Concomitant]
     Active Substance: SULFAMETHOXAZOLE\TRIMETHOPRIM
  20. GLUTAMINE [Concomitant]
     Active Substance: GLUTAMINE
  21. BETA CAROTENE [Concomitant]
  22. LYSINE [Concomitant]
     Active Substance: LYSINE
  23. IMBRUVICA [Suspect]
     Active Substance: IBRUTINIB
     Indication: MANTLE CELL LYMPHOMA
     Route: 048
     Dates: start: 20140113
  24. VITAMIN E\VITAMINS [Concomitant]
     Active Substance: .ALPHA.-TOCOPHEROL\VITAMINS
  25. TURMERIC [Concomitant]
     Active Substance: HERBALS\TURMERIC
  26. L GLUTAMINE [Concomitant]
     Active Substance: GLUTAMINE
  27. IMBRUVICA [Suspect]
     Active Substance: IBRUTINIB
     Indication: MANTLE CELL LYMPHOMA
     Route: 048
     Dates: start: 20130701
  28. DILTIAZEM. [Concomitant]
     Active Substance: DILTIAZEM
     Indication: HYPOTHYROIDISM
     Route: 048
     Dates: start: 20140501

REACTIONS (21)
  - Deafness [Unknown]
  - Ear haemorrhage [Unknown]
  - Sinusitis [Not Recovered/Not Resolved]
  - Eye infection [Recovered/Resolved]
  - Respiratory tract infection [Recovered/Resolved]
  - Diarrhoea [Not Recovered/Not Resolved]
  - Malaise [Unknown]
  - Protein total abnormal [Recovered/Resolved]
  - Productive cough [Not Recovered/Not Resolved]
  - Pneumonia [Recovered/Resolved]
  - Infection [Not Recovered/Not Resolved]
  - Tympanic membrane perforation [Not Recovered/Not Resolved]
  - Surgery [Unknown]
  - Cystitis [Not Recovered/Not Resolved]
  - Atrial fibrillation [Not Recovered/Not Resolved]
  - Dehydration [Not Recovered/Not Resolved]
  - Hypoacusis [Not Recovered/Not Resolved]
  - Sputum abnormal [Not Recovered/Not Resolved]
  - Thyroid disorder [Unknown]
  - Ear infection [Recovered/Resolved]
  - Contusion [Unknown]

NARRATIVE: CASE EVENT DATE: 2015
